FAERS Safety Report 5983036-9 (Version None)
Quarter: 2008Q4

REPORT INFORMATION
  Report Type: 
  Country: None (occurrence: None)
  Receive Date: 20081205
  Receipt Date: 20081205
  Transmission Date: 20090506
  Serious: Yes (Other)
  Sender: FDA-Public Use
  Company Number: None

PATIENT
  Age: 43 Year
  Sex: Female
  Weight: 83.9154 kg

DRUGS (1)
  1. CYMBALTA [Suspect]
     Indication: PAIN
     Dosage: 1 DAILY PO
     Route: 048
     Dates: start: 20080418, end: 20081123

REACTIONS (6)
  - AFFECTIVE DISORDER [None]
  - ANGER [None]
  - BALANCE DISORDER [None]
  - DIZZINESS [None]
  - HYPERACUSIS [None]
  - PARAESTHESIA [None]
